FAERS Safety Report 8590226-8 (Version None)
Quarter: 2012Q3

REPORT INFORMATION
  Report Type: 
  Country: None (occurrence: None)
  Receive Date: 20120813
  Receipt Date: 20120803
  Transmission Date: 20120928
  Serious: Yes (Death, Hospitalization)
  Sender: FDA-Public Use
  Company Number: US-BRISTOL-MYERS SQUIBB COMPANY-15394703

PATIENT
  Age: 64 Year
  Sex: Female
  Weight: 122 kg

DRUGS (17)
  1. ZOFRAN [Concomitant]
     Dosage: ZOFRAN 8MG TABS EVERY 8 HOURS
     Route: 048
     Dates: start: 20100501
  2. LASIX [Concomitant]
     Dosage: FUROSEMIDE 20MG TABS
     Route: 048
     Dates: start: 20100922
  3. COUMADIN [Concomitant]
     Dosage: COUMADIN 5MG TABS
     Route: 048
     Dates: start: 20100930
  4. OMEPRAZOLE [Concomitant]
     Dosage: EQL OMEPRAZOLE 20 MG TBEC
     Route: 048
     Dates: start: 20041101
  5. CLONIDINE [Concomitant]
  6. METOPROLOL TARTRATE [Concomitant]
     Dosage: METOPROLOL TARTRATE 25 MG TABS
     Route: 048
     Dates: start: 20101006
  7. XANAX [Concomitant]
     Dosage: ALPRAZOLAM 0.25MG TABS DAILY
     Route: 048
     Dates: start: 20100915
  8. VITAMIN D [Concomitant]
     Dosage: VITAMIN D3 TABS
     Route: 048
     Dates: start: 20091101
  9. BENADRYL [Concomitant]
     Indication: PRURITUS
     Dosage: 4 TIMES A DAY
  10. PROMETHAZINE [Concomitant]
     Dosage: PROMETHAZINE HCL 25MG TABS EVERY 8 HRS
     Route: 048
     Dates: start: 20100501
  11. SYNTHROID [Concomitant]
     Dosage: SYNTHROID 100 MCG TABS,125 MCG TABS FIR A TOTAL OF 225 MCG
     Route: 048
     Dates: start: 20081101
  12. DIOVAN HCT [Concomitant]
     Dosage: DIOVAN HCT 160-25 MG TABS
     Dates: start: 20041101
  13. PERCOCET [Concomitant]
     Indication: PAIN
     Dosage: PERCOCET 5/325MG TABS
     Route: 048
     Dates: start: 20100301
  14. MULTI-VITAMINS [Concomitant]
     Dosage: CENTRUMSILVER TABS
     Route: 048
     Dates: start: 20100701
  15. IPILIMUMAB [Suspect]
     Indication: MALIGNANT MELANOMA
     Dosage: .NO OF COURSES=1
     Route: 042
     Dates: start: 20101109, end: 20101109
  16. ANTIHISTAMINE NOS [Concomitant]
  17. POTASSIUM CHLORIDE [Concomitant]
     Dosage: POTASSIUM CHLORIDE 20MEQ CAPS 3
     Route: 048
     Dates: start: 20101108

REACTIONS (3)
  - DYSPNOEA [None]
  - DEATH [None]
  - OEDEMA PERIPHERAL [None]
